FAERS Safety Report 8711778 (Version 2)
Quarter: 2012Q4

REPORT INFORMATION
  Report Type: 
  Country: VN (occurrence: VN)
  Receive Date: 20120807
  Receipt Date: 20120920
  Transmission Date: 20130627
  Serious: Yes (Other)
  Sender: FDA-Public Use
  Company Number: VN-BAXTER-2012BAX013496

PATIENT
  Age: 14 None
  Sex: Male
  Weight: 36 kg

DRUGS (1)
  1. DIANEAL LOW CALCIUM (2,5MEQ.L) PERITIONEAL DIALYSIS SOLUTION WITH 1.5% [Suspect]
     Indication: CONTINUOUS AMBULATORY PERITONEAL DIALYSIS
     Route: 033
     Dates: start: 20100402, end: 20120730

REACTIONS (3)
  - Incision site infection [Not Recovered/Not Resolved]
  - Pyrexia [Not Recovered/Not Resolved]
  - Peritonitis bacterial [Not Recovered/Not Resolved]
